FAERS Safety Report 21249934 (Version 1)
Quarter: 2022Q3

REPORT INFORMATION
  Report Type: Spontaneous
  Country: US (occurrence: None)
  Receive Date: 20220824
  Receipt Date: 20220824
  Transmission Date: 20221027
  Serious: Yes (Other)
  Sender: FDA-Public Use
  Company Number: None

PATIENT
  Age: 63 Year
  Sex: Female
  Weight: 96.75 kg

DRUGS (12)
  1. TRIAMCINOLONE [Suspect]
     Active Substance: TRIAMCINOLONE
     Indication: Localised infection
     Dates: start: 20220510, end: 20220627
  2. CLOBETASOL [Suspect]
     Active Substance: CLOBETASOL
     Dates: start: 20220501, end: 20220509
  3. METFORMIN [Concomitant]
     Active Substance: METFORMIN HYDROCHLORIDE
  4. BENICAR [Concomitant]
     Active Substance: OLMESARTAN MEDOXOMIL
  5. Albutherol [Concomitant]
  6. SPIRONOLACTONE [Concomitant]
     Active Substance: SPIRONOLACTONE
  7. PROTONIX [Concomitant]
     Active Substance: PANTOPRAZOLE SODIUM
  8. TRULICITY [Concomitant]
     Active Substance: DULAGLUTIDE
  9. Balmond skin salvation [Concomitant]
  10. VASELINE PURE [Concomitant]
     Active Substance: PETROLATUM
  11. BENADRYL [Concomitant]
     Active Substance: DIPHENHYDRAMINE HYDROCHLORIDE
  12. Tylanol [Concomitant]

REACTIONS (7)
  - Rash [None]
  - Erythema [None]
  - Dermatitis atopic [None]
  - Application site pain [None]
  - Application site pruritus [None]
  - Application site erythema [None]
  - Topical steroid withdrawal reaction [None]

NARRATIVE: CASE EVENT DATE: 20220510
